FAERS Safety Report 6431381-5 (Version None)
Quarter: 2009Q4

REPORT INFORMATION
  Report Type: 
  Country: None (occurrence: None)
  Receive Date: 20091106
  Receipt Date: 20091027
  Transmission Date: 20100525
  Serious: Yes (Hospitalization)
  Sender: FDA-Public Use
  Company Number: PHHY2009AU43107

PATIENT
  Sex: Male

DRUGS (8)
  1. EXELON [Suspect]
     Indication: DEMENTIA ALZHEIMER'S TYPE
     Dosage: PATCH TAKEN DAILY
     Route: 061
     Dates: start: 20080730, end: 20090615
  2. ALLOPURINOL [Concomitant]
  3. ACETAMINOPHEN [Concomitant]
  4. ISOPTIN [Concomitant]
  5. FISH OIL [Concomitant]
  6. VITAMIN D3 [Concomitant]
  7. AURORIX [Concomitant]
  8. CLOPIDOGREL [Concomitant]

REACTIONS (3)
  - BLISTER [None]
  - RASH MACULAR [None]
  - ROAD TRAFFIC ACCIDENT [None]
